FAERS Safety Report 5032236-3 (Version None)
Quarter: 2006Q2

REPORT INFORMATION
  Report Type: 
  Country: None (occurrence: None)
  Receive Date: 20060619
  Receipt Date: 20060605
  Transmission Date: 20061013
  Serious: Yes (Other)
  Sender: FDA-Public Use
  Company Number: HQWYE985006JUN06

PATIENT
  Age: 62 Year
  Sex: Female

DRUGS (5)
  1. PREMPRO [Suspect]
     Indication: HORMONE REPLACEMENT THERAPY
  2. ACTIVELLA [Suspect]
  3. CYCRIN [Suspect]
  4. PREMARIN [Suspect]
  5. PROVERA [Suspect]

REACTIONS (1)
  - NEOPLASM MALIGNANT [None]
